FAERS Safety Report 9122433 (Version 4)
Quarter: 2013Q4

REPORT INFORMATION
  Report Type: Report from Study
  Country: US (occurrence: US)
  Receive Date: 20130227
  Receipt Date: 20131121
  Transmission Date: 20140711
  Serious: Yes (Hospitalization, Other)
  Sender: FDA-Public Use
  Company Number: US-ELI_LILLY_AND_COMPANY-US201205000060

PATIENT
  Age: 82 Year
  Sex: Female

DRUGS (13)
  1. TERIPARATIDE [Suspect]
     Indication: OSTEOPOROSIS
     Dosage: 20 UG, QD
     Route: 065
     Dates: start: 20120417
  2. TERIPARATIDE [Suspect]
     Indication: BONE DISORDER
     Dosage: 20 UG, QD
     Route: 065
  3. TERIPARATIDE [Suspect]
     Dosage: 20 UG, QD
     Route: 065
  4. TERIPARATIDE [Suspect]
     Dosage: 20 UG, QD
     Route: 065
  5. TERIPARATIDE [Suspect]
     Dosage: 20 UG, QD
     Route: 065
  6. MAGNESIUM [Concomitant]
     Indication: PRODUCT USED FOR UNKNOWN INDICATION
     Dosage: UNK
     Route: 065
  7. RETINAVITES [Concomitant]
     Indication: MACULAR DEGENERATION
     Dosage: UNK
     Route: 065
  8. OSCAL [Concomitant]
     Indication: PRODUCT USED FOR UNKNOWN INDICATION
     Dosage: UNK
     Route: 065
  9. FISH OIL [Concomitant]
     Indication: PRODUCT USED FOR UNKNOWN INDICATION
     Dosage: UNK
     Route: 065
  10. PLAQUENIL [Concomitant]
     Indication: ARTHRITIS
     Dosage: UNK
     Route: 065
  11. NEURONTIN [Concomitant]
     Indication: ARTHRITIS
     Dosage: 0.5 DF, OTHER
     Route: 065
  12. NEURONTIN [Concomitant]
     Dosage: 1 DF, EACH EVENING
  13. VITAMIN D [Concomitant]
     Indication: PRODUCT USED FOR UNKNOWN INDICATION
     Dosage: UNK
     Route: 065

REACTIONS (24)
  - Femur fracture [Recovered/Resolved]
  - Fall [Recovered/Resolved]
  - Ankle fracture [Unknown]
  - Vision blurred [Unknown]
  - Pain in extremity [Unknown]
  - Burning sensation [Unknown]
  - Fall [Recovered/Resolved]
  - Ligament sprain [Unknown]
  - Face injury [Unknown]
  - Contusion [Not Recovered/Not Resolved]
  - Head injury [Unknown]
  - Swelling [Unknown]
  - Arthralgia [Unknown]
  - Constipation [Unknown]
  - Nausea [Recovering/Resolving]
  - Muscle spasms [Unknown]
  - Increased upper airway secretion [Unknown]
  - Limb injury [Unknown]
  - Drug dose omission [Not Recovered/Not Resolved]
  - Balance disorder [Unknown]
  - Pain [Unknown]
  - Insomnia [Unknown]
  - Rash macular [Not Recovered/Not Resolved]
  - Dyspepsia [Unknown]
